FAERS Safety Report 7354989-1 (Version None)
Quarter: 2011Q1

REPORT INFORMATION
  Report Type: 
  Country: None (occurrence: None)
  Receive Date: 20110316
  Receipt Date: 20110310
  Transmission Date: 20110831
  Serious: Yes (Hospitalization)
  Sender: FDA-Public Use
  Company Number: DE-PFIZER INC-2011053067

PATIENT
  Age: 78 Year
  Sex: Female

DRUGS (3)
  1. SUNITINIB MALATE [Suspect]
     Indication: METASTATIC RENAL CELL CARCINOMA
     Dosage: 37.5 MG DOSE ACCORDING TO PROTOCOL
     Dates: start: 20101005, end: 20101024
  2. AMOXICILLIN AND CLAVULANATE POTASSIUM [Concomitant]
     Dosage: UNK
     Dates: start: 20100101, end: 20100101
  3. MOVIPREP [Concomitant]
     Dosage: 1 BAG, UNK
     Dates: start: 20101025

REACTIONS (1)
  - GENERAL PHYSICAL HEALTH DETERIORATION [None]
